FAERS Safety Report 9333415 (Version 1)
Quarter: 2013Q2

REPORT INFORMATION
  Report Type: Spontaneous
  Country: US (occurrence: US)
  Receive Date: 20130606
  Receipt Date: 20130606
  Transmission Date: 20140414
  Serious: No
  Sender: FDA-Public Use
  Company Number: US-GLAXOSMITHKLINE-A1008215A

PATIENT
  Age: 49 Year
  Sex: Female

DRUGS (7)
  1. LAMICTAL [Suspect]
     Indication: BIPOLAR DISORDER
     Dosage: 100MG PER DAY
     Route: 048
     Dates: start: 201207
  2. VIIBRYD [Suspect]
  3. ABILIFY [Concomitant]
  4. PRAZOSIN [Concomitant]
  5. SEROQUEL [Concomitant]
  6. KLONOPIN [Concomitant]
  7. TEMAZEPAM [Concomitant]

REACTIONS (5)
  - Drug screen false positive [Not Recovered/Not Resolved]
  - Fall [Unknown]
  - Gait disturbance [Unknown]
  - Paraesthesia [Unknown]
  - Muscular weakness [Unknown]
